FAERS Safety Report 6555268-2 (Version None)
Quarter: 2010Q1

REPORT INFORMATION
  Report Type: 
  Country: None (occurrence: None)
  Receive Date: 20100128
  Receipt Date: 20090212
  Transmission Date: 20100710
  Serious: No
  Sender: FDA-Public Use
  Company Number: A0768479A

PATIENT
  Age: 27 Year
  Sex: Male

DRUGS (2)
  1. BUPROPION HYDROCHLORIDE [Suspect]
     Indication: ANXIETY
     Dosage: 300MG PER DAY
     Route: 048
     Dates: end: 20080301
  2. NO CONCURRENT MEDICATION [Concomitant]

REACTIONS (1)
  - ALOPECIA [None]
